FAERS Safety Report 8522656-4 (Version None)
Quarter: 2012Q3

REPORT INFORMATION
  Report Type: 
  Country: None (occurrence: None)
  Receive Date: 20120719
  Receipt Date: 20120718
  Transmission Date: 20120928
  Serious: Yes (Death, Other)
  Sender: FDA-Public Use
  Company Number: FR-GILEAD-2012-0056329

PATIENT
  Age: 59 Year
  Sex: Male

DRUGS (4)
  1. ENTECAVIR [Concomitant]
     Indication: HEPATITIS B
     Dosage: 0.5 MG, QD
     Dates: start: 20111207, end: 20120114
  2. TACROLIMUS [Concomitant]
     Indication: RENAL FAILURE
  3. VIREAD [Suspect]
     Indication: HEPATITIS B
     Dosage: 245 MG, UNK
     Dates: start: 20120106
  4. MYCOPHENOLATE MOFETIL [Concomitant]
     Indication: RENAL FAILURE

REACTIONS (5)
  - PORTAL VEIN THROMBOSIS [None]
  - BLOOD CREATININE INCREASED [None]
  - HAEMORRHAGE [None]
  - MULTI-ORGAN FAILURE [None]
  - PROTHROMBIN TIME SHORTENED [None]
